FAERS Safety Report 6564786-2 (Version None)
Quarter: 2010Q1

REPORT INFORMATION
  Report Type: 
  Country: None (occurrence: None)
  Receive Date: 20100201
  Receipt Date: 20100119
  Transmission Date: 20100710
  Serious: Yes (Hospitalization, Other)
  Sender: FDA-Public Use
  Company Number: PHHY2009US31083

PATIENT
  Sex: Female

DRUGS (6)
  1. TRILEPTAL [Suspect]
     Indication: CONVULSION
     Dosage: UNK
  2. BETASERON [Suspect]
     Indication: MULTIPLE SCLEROSIS
     Dosage: 8 MIU
     Route: 058
     Dates: start: 20070105, end: 20070331
  3. BETASERON [Suspect]
     Dosage: 8 MIU
     Route: 058
     Dates: start: 20090725, end: 20091229
  4. DEPAKOTE [Suspect]
     Indication: CONVULSION
     Dosage: UNK
  5. REMERON [Concomitant]
  6. KLONOPIN [Concomitant]

REACTIONS (6)
  - ACUTE LEUKAEMIA [None]
  - ANAEMIA [None]
  - BACK PAIN [None]
  - CENTRAL NERVOUS SYSTEM LESION [None]
  - INTERVERTEBRAL DISC PROTRUSION [None]
  - PAIN IN EXTREMITY [None]
